FAERS Safety Report 4545925-1 (Version None)
Quarter: 2005Q1

REPORT INFORMATION
  Report Type: 
  Country: None (occurrence: None)
  Receive Date: 20050103
  Receipt Date: 20041221
  Transmission Date: 20050727
  Serious: Yes (Other)
  Sender: FDA-Public Use
  Company Number: 200416156BCC

PATIENT
  Sex: Male
  Weight: 117.9352 kg

DRUGS (3)
  1. ALEVE [Suspect]
     Dosage: 440 MG, ONCE, ORAL
     Route: 048
  2. PHENOBARBITAL [Suspect]
     Indication: CONVULSION
     Dosage: 45 MG, QID, ORAL
     Route: 048
  3. LORAZEPAM [Concomitant]

REACTIONS (2)
  - CONVULSION [None]
  - DRUG INTERACTION [None]
